FAERS Safety Report 7823294-9 (Version None)
Quarter: 2011Q4

REPORT INFORMATION
  Report Type: 
  Country: None (occurrence: None)
  Receive Date: 20111014
  Receipt Date: 20110930
  Transmission Date: 20120403
  Serious: Yes (Other)
  Sender: FDA-Public Use
  Company Number: TPA2011A06371

PATIENT
  Age: 85 Year
  Sex: Female

DRUGS (1)
  1. ACTOS [Suspect]
     Indication: TYPE 2 DIABETES MELLITUS
     Dosage: 45 MG OVER 12 MONTHS

REACTIONS (2)
  - BLADDER CANCER [None]
  - DIABETES MELLITUS INADEQUATE CONTROL [None]
